FAERS Safety Report 10134309 (Version 1)
Quarter: 2014Q2

REPORT INFORMATION
  Report Type: Spontaneous
  Country: US (occurrence: US)
  Receive Date: 20140428
  Receipt Date: 20140428
  Transmission Date: 20141212
  Serious: Yes (Hospitalization)
  Sender: FDA-Public Use
  Company Number: US-JNJFOC-20140413801

PATIENT
  Age: 91 Year
  Sex: Male

DRUGS (1)
  1. ZYTIGA [Suspect]
     Indication: PROSTATE CANCER METASTATIC
     Dosage: STREANGTH 250 MG
     Route: 048
     Dates: start: 20140121, end: 201402

REACTIONS (1)
  - Intestinal haemorrhage [Unknown]
